FAERS Safety Report 11108758 (Version 1)
Quarter: 2015Q2

REPORT INFORMATION
  Report Type: Spontaneous
  Country: CZ (occurrence: None)
  Receive Date: 20150511
  Receipt Date: 20150511
  Transmission Date: 20150821
  Serious: Yes (Death, Other)
  Sender: FDA-Public Use
  Company Number: CZ-2015VAL000299

PATIENT
  Age: 34 Year
  Sex: Female

DRUGS (3)
  1. BROMOCRIPTINE MESYLATE (BROMOCRIPTINE MESYLATE) UNKNOWN [Suspect]
     Active Substance: BROMOCRIPTINE MESYLATE
     Indication: PERIPARTUM CARDIOMYOPATHY
  2. PREDNISONE (PREDNISONE) [Suspect]
     Active Substance: PREDNISONE
     Indication: IMMUNOSUPPRESSION
  3. AZATHIOPRINE (AZATHIOPRINE) [Suspect]
     Active Substance: AZATHIOPRINE
     Indication: IMMUNOSUPPRESSION

REACTIONS (10)
  - Dilatation ventricular [None]
  - Refusal of treatment by patient [None]
  - Drug ineffective [None]
  - Condition aggravated [None]
  - General physical health deterioration [None]
  - Sudden death [None]
  - Therapeutic response decreased [None]
  - Ventricular tachycardia [None]
  - Bundle branch block left [None]
  - Enzyme inhibition [None]
